FAERS Safety Report 8008443-4 (Version None)
Quarter: 2011Q4

REPORT INFORMATION
  Report Type: 
  Country: None (occurrence: None)
  Receive Date: 20111227
  Receipt Date: 20111222
  Transmission Date: 20120403
  Serious: Yes (Other)
  Sender: FDA-Public Use
  Company Number: US-BAYER-2011-123292

PATIENT
  Age: 55 Year
  Sex: Female

DRUGS (1)
  1. BETASERON [Suspect]
     Indication: MULTIPLE SCLEROSIS
     Dosage: 8 MIU, QOD
     Route: 058
     Dates: start: 20111110

REACTIONS (6)
  - INJECTION SITE HAEMATOMA [None]
  - SPEECH DISORDER [None]
  - HAEMORRHAGIC DIATHESIS [None]
  - TONGUE PARALYSIS [None]
  - MUSCLE SPASTICITY [None]
  - VESSEL PUNCTURE SITE HAEMORRHAGE [None]
